FAERS Safety Report 4577399-9 (Version None)
Quarter: 2005Q1

REPORT INFORMATION
  Report Type: 
  Country: None (occurrence: None)
  Receive Date: 20050208
  Receipt Date: 20050126
  Transmission Date: 20050727
  Serious: Yes (Other)
  Sender: FDA-Public Use
  Company Number: S05-UKI-00436-01

PATIENT
  Age: 78 Year

DRUGS (8)
  1. ESCITALOPRAM OXALATE [Suspect]
     Indication: DEPRESSION
     Dosage: 5 MG QD PO
     Route: 048
     Dates: start: 20030110, end: 20050114
  2. TEMAZEPAM [Concomitant]
  3. ASPIRIN [Concomitant]
  4. BETAHISTINE                   (BETAHISTINE) [Concomitant]
  5. LOSARTAN                    (LOSARTAN) [Concomitant]
  6. RANITIDINE [Concomitant]
  7. PROCHLORPERAZINE [Concomitant]
  8. RISEDRONATE SODIUM           (RESIDRONATE SODIUM) [Concomitant]

REACTIONS (2)
  - ERYTHEMA [None]
  - FLUSHING [None]
